FAERS Safety Report 8475624-5 (Version None)
Quarter: 2012Q2

REPORT INFORMATION
  Report Type: 
  Country: None (occurrence: None)
  Receive Date: 20120628
  Receipt Date: 20120614
  Transmission Date: 20120825
  Serious: Yes (Hospitalization)
  Sender: FDA-Public Use
  Company Number: CA-MYLANLABS-2012S1012319

PATIENT
  Age: 79 Year
  Sex: Female

DRUGS (4)
  1. RABEPRAZOLE SODIUM [Concomitant]
     Route: 065
  2. RISEDRONIC ACID [Suspect]
     Indication: OSTEOPOROSIS
     Dosage: 35MG WEEKLY
     Route: 065
  3. NAPROXEN [Suspect]
     Indication: PAIN MANAGEMENT
     Route: 065
  4. DICLOFENAC SODIUM [Suspect]
     Route: 065

REACTIONS (4)
  - ANAEMIA [None]
  - GASTROINTESTINAL HAEMORRHAGE [None]
  - MUSCULOSKELETAL PAIN [None]
  - GASTRIC ULCER [None]
